FAERS Safety Report 4868059-5 (Version None)
Quarter: 2005Q4

REPORT INFORMATION
  Report Type: 
  Country: None (occurrence: None)
  Receive Date: 20051229
  Receipt Date: 20051221
  Transmission Date: 20060501
  Serious: Yes (Other)
  Sender: FDA-Public Use
  Company Number: US-JNJFOC-20051205256

PATIENT
  Sex: Male

DRUGS (2)
  1. DURAGESIC-100 [Suspect]
     Route: 062
  2. CHEMOTHERAPY [Concomitant]

REACTIONS (3)
  - DIABETES MELLITUS [None]
  - HOT FLUSH [None]
  - TREMOR [None]
